FAERS Safety Report 6572550-3 (Version None)
Quarter: 2010Q1

REPORT INFORMATION
  Report Type: 
  Country: None (occurrence: None)
  Receive Date: 20100205
  Receipt Date: 20100202
  Transmission Date: 20100710
  Serious: Yes (Hospitalization, Other)
  Sender: FDA-Public Use
  Company Number: GB-PFIZER INC-2009313748

PATIENT
  Age: 63 Year
  Sex: Male

DRUGS (15)
  1. CHAMPIX [Suspect]
     Indication: SMOKING CESSATION THERAPY
     Dosage: 1 MG, 2X/DAY
     Route: 048
     Dates: start: 20091218
  2. PARACETAMOL [Concomitant]
  3. RAMIPRIL [Concomitant]
  4. CARVEDILOL [Concomitant]
  5. THIAMINE [Concomitant]
  6. VITAMIN B COMPLEX CAP [Concomitant]
  7. AMOXICILLIN [Concomitant]
  8. CLARITHROMYCIN [Concomitant]
  9. CLOPIDOGREL [Concomitant]
  10. ATORVASTATIN [Concomitant]
  11. ADCAL-D3 [Concomitant]
  12. FLUOXETINE [Concomitant]
  13. TRAMADOL [Concomitant]
  14. OMEPRAZOLE [Concomitant]
  15. ALLOPURINOL [Concomitant]

REACTIONS (6)
  - AGITATION [None]
  - ANXIETY [None]
  - HALLUCINATION [None]
  - ORTHOPEDIC PROCEDURE [None]
  - SEPSIS [None]
  - WITHDRAWAL SYNDROME [None]
